FAERS Safety Report 5782316-X (Version None)
Quarter: 2008Q2

REPORT INFORMATION
  Report Type: 
  Country: None (occurrence: None)
  Receive Date: 20080623
  Receipt Date: 20080530
  Transmission Date: 20081010
  Serious: No
  Sender: FDA-Public Use
  Company Number: US-BOEHRINGER INGELHEIM GMBH, GERMANY-2008-BP-06875BP

PATIENT
  Sex: Female

DRUGS (10)
  1. SPIRIVA [Suspect]
     Indication: CHRONIC OBSTRUCTIVE PULMONARY DISEASE
     Route: 055
     Dates: start: 20071201
  2. SYNTHROID [Concomitant]
     Indication: HYPOTHYROIDISM
  3. LIPITOR [Concomitant]
     Indication: HYPERCHOLESTEROLAEMIA
  4. DYAZIDE [Concomitant]
     Indication: HYPERTENSION
  5. NORVASC [Concomitant]
     Indication: HYPERTENSION
  6. ACTONEL [Concomitant]
  7. CENTRUM SILVER [Concomitant]
  8. FISH OIL [Concomitant]
  9. VIT D [Concomitant]
  10. CALTRATE [Concomitant]

REACTIONS (2)
  - DYSPNOEA [None]
  - DYSPNOEA EXERTIONAL [None]
